FAERS Safety Report 15005847 (Version 1)
Quarter: 2018Q2

REPORT INFORMATION
  Report Type: Spontaneous
  Country: US (occurrence: US)
  Receive Date: 20180521
  Receipt Date: 20180521
  Transmission Date: 20180711
  Serious: Yes (Hospitalization)
  Sender: FDA-Public Use
  Company Number: None

PATIENT
  Age: 83 Year
  Sex: Male
  Weight: 99.8 kg

DRUGS (18)
  1. APAP [Concomitant]
     Active Substance: ACETAMINOPHEN
  2. TAMIFLU [Suspect]
     Active Substance: OSELTAMIVIR PHOSPHATE
     Indication: INFLUENZA
     Route: 048
  3. TRAMADOL. [Concomitant]
     Active Substance: TRAMADOL
  4. DUONEBS [Concomitant]
  5. APIXIBAN [Concomitant]
     Active Substance: APIXABAN
  6. VITAMIN C [Concomitant]
     Active Substance: ASCORBIC ACID
  7. VITAMIN D [Concomitant]
     Active Substance: CHOLECALCIFEROL
  8. NORCO [Concomitant]
     Active Substance: ACETAMINOPHEN\HYDROCODONE BITARTRATE
  9. TOPROL XL [Concomitant]
     Active Substance: METOPROLOL SUCCINATE
  10. CEFPODOXIME [Suspect]
     Active Substance: CEFPODOXIME
  11. COQ10 [Concomitant]
     Active Substance: UBIDECARENONE
  12. CALCIUM [Concomitant]
     Active Substance: CALCIUM
  13. ANTACID [Concomitant]
     Active Substance: ALUMINUM HYDROXIDE\CALCIUM CARBONATE\DIMETHICONE\MAGNESIUM HYDROXIDE
  14. XYLOCAINE [Concomitant]
     Active Substance: LIDOCAINE HYDROCHLORIDE
  15. MYRBETRIQ [Concomitant]
     Active Substance: MIRABEGRON
  16. CEFEPIME [Suspect]
     Active Substance: CEFEPIME HYDROCHLORIDE
     Indication: INFLUENZA
     Route: 042
  17. PLAVIX [Concomitant]
     Active Substance: CLOPIDOGREL BISULFATE
  18. NEURONTIN [Concomitant]
     Active Substance: GABAPENTIN

REACTIONS (3)
  - Encephalopathy [None]
  - Drug eruption [None]
  - Type IV hypersensitivity reaction [None]

NARRATIVE: CASE EVENT DATE: 20180203
